FAERS Safety Report 17871588 (Version 3)
Quarter: 2020Q3

REPORT INFORMATION
  Report Type: Report from Study
  Country: GB (occurrence: GB)
  Receive Date: 20200608
  Receipt Date: 20200709
  Transmission Date: 20201103
  Serious: Yes (Other)
  Sender: FDA-Public Use
  Company Number: GB-SAMSUNG BIOEPIS-SB-2020-18678

PATIENT
  Sex: Female

DRUGS (4)
  1. IMRALDI [Suspect]
     Active Substance: ADALIMUMAB
     Dosage: WEEK FOUR (INDUCTION DOSE)
     Route: 058
  2. IMRALDI [Suspect]
     Active Substance: ADALIMUMAB
     Route: 058
  3. IMRALDI [Suspect]
     Active Substance: ADALIMUMAB
     Indication: CROHN^S DISEASE
     Dosage: WEEK ZERO (INDUCTION DOSE)
     Route: 058
     Dates: start: 20200511
  4. IMRALDI [Suspect]
     Active Substance: ADALIMUMAB
     Dosage: WEEK TWO (INDUCTION DOSE)
     Route: 058

REACTIONS (8)
  - Syncope [Unknown]
  - Illness [Recovering/Resolving]
  - Hyperhidrosis [Unknown]
  - Loss of consciousness [Unknown]
  - Diarrhoea [Recovering/Resolving]
  - Abdominal pain upper [Unknown]
  - Fatigue [Unknown]
  - Blood glucose decreased [Recovering/Resolving]
